FAERS Safety Report 9491572 (Version 1)
Quarter: 2013Q1

REPORT INFORMATION
  Report Type: Not Available
  Country: US (occurrence: US)
  Receive Date: 20121219
  Receipt Date: 20121219
  Transmission Date: 20140127
  Serious: No
  Sender: FDA-Public Use
  Company Number: US-LUNDBECK-DKLU1082407

PATIENT
  Sex: Female

DRUGS (4)
  1. ONFI [Suspect]
     Indication: GRAND MAL CONVULSION
     Dates: start: 20120403
  2. ONFI [Suspect]
  3. ONFI [Suspect]
  4. KEPPRA [Concomitant]
     Indication: PRODUCT USED FOR UNKNOWN INDICATION

REACTIONS (2)
  - Coordination abnormal [Unknown]
  - Dizziness [Unknown]
